FAERS Safety Report 15387121 (Version 1)
Quarter: 2018Q3

REPORT INFORMATION
  Report Type: Spontaneous
  Country: US (occurrence: US)
  Receive Date: 20180914
  Receipt Date: 20180914
  Transmission Date: 20181010
  Serious: No
  Sender: FDA-Public Use
  Company Number: US-TEVA-2018-US-952897

PATIENT
  Sex: Female
  Weight: 58 kg

DRUGS (3)
  1. ENOXAPARIN [Suspect]
     Active Substance: ENOXAPARIN
     Indication: COAGULOPATHY
     Route: 065
     Dates: start: 201808
  2. ENOXAPARIN [Suspect]
     Active Substance: ENOXAPARIN
     Dosage: DOSE STRENGTH:  60 MG/0.6 ML
     Route: 065
     Dates: start: 201808
  3. ENOXAPARIN [Suspect]
     Active Substance: ENOXAPARIN
     Indication: PULMONARY EMBOLISM
     Dosage: DOSE STRENGTH:  60 MG/0.6 ML
     Route: 065
     Dates: start: 201808

REACTIONS (3)
  - Eye disorder [Unknown]
  - Eye pain [Unknown]
  - Weight decreased [Unknown]

NARRATIVE: CASE EVENT DATE: 201808
